FAERS Safety Report 5069317-4 (Version None)
Quarter: 2006Q3

REPORT INFORMATION
  Report Type: 
  Country: None (occurrence: None)
  Receive Date: 20060803
  Receipt Date: 20060727
  Transmission Date: 20061208
  Serious: Yes (Death, Hospitalization)
  Sender: FDA-Public Use
  Company Number: PHEH2006US09676

PATIENT
  Sex: Female

DRUGS (2)
  1. EXJADE [Suspect]
     Dosage: UNK, QD
     Route: 048
  2. DESFERAL [Suspect]
     Route: 042

REACTIONS (1)
  - CARDIAC FAILURE CONGESTIVE [None]
